FAERS Safety Report 5216982-4 (Version None)
Quarter: 2007Q1

REPORT INFORMATION
  Report Type: 
  Country: None (occurrence: None)
  Receive Date: 20070124
  Receipt Date: 20070112
  Transmission Date: 20070707
  Serious: Yes (Other)
  Sender: FDA-Public Use
  Company Number: PHEH2007US00843

PATIENT
  Age: 33 Year
  Sex: Male

DRUGS (2)
  1. EXJADE [Suspect]
     Indication: SICKLE CELL ANAEMIA
     Dosage: 125 MG, QD
     Route: 048
     Dates: start: 20061207, end: 20061229
  2. REVLIMID [Suspect]
     Dates: start: 20070106

REACTIONS (3)
  - EYE SWELLING [None]
  - SWELLING FACE [None]
  - SWOLLEN TONGUE [None]
